FAERS Safety Report 4550861-0 (Version None)
Quarter: 2004Q4

REPORT INFORMATION
  Report Type: 
  Country: None (occurrence: None)
  Receive Date: 20041217
  Receipt Date: 20041007
  Transmission Date: 20050328
  Serious: No
  Sender: FDA-Public Use
  Company Number: 2004-BP-09773BP(0)

PATIENT
  Sex: Female

DRUGS (10)
  1. SPIRIVA [Suspect]
     Indication: CHRONIC OBSTRUCTIVE AIRWAYS DISEASE
     Dosage: (18 MCG), IH
     Route: 055
     Dates: start: 20040801
  2. ADVAIR (SERETIDE MITE) [Concomitant]
  3. SINGULAIR [Concomitant]
  4. IPRATROPIUM BROMIDE [Concomitant]
  5. XOPENOX (LEVOSALBUTAMOL) [Concomitant]
  6. PRAVACHOL [Concomitant]
  7. DESIPRAMINE HCL [Concomitant]
  8. FOSAMAX [Concomitant]
  9. MAXAIR [Concomitant]
  10. ASPIRIN [Concomitant]

REACTIONS (1)
  - DRUG INEFFECTIVE [None]
